FAERS Safety Report 9331562 (Version 1)
Quarter: 2013Q2

REPORT INFORMATION
  Report Type: Spontaneous
  Country: CN (occurrence: CN)
  Receive Date: 20130605
  Receipt Date: 20130605
  Transmission Date: 20140414
  Serious: Yes (Hospitalization, Other)
  Sender: FDA-Public Use
  Company Number: CN-ASTRAZENECA-2013SE39987

PATIENT
  Sex: Female
  Weight: 62.6 kg

DRUGS (3)
  1. ESOMEPRAZOLE MAGNESIUM [Suspect]
     Indication: HELICOBACTER INFECTION
     Route: 048
     Dates: start: 20120125
  2. AMOXICILLIN [Suspect]
     Indication: HELICOBACTER INFECTION
     Route: 048
     Dates: start: 20120125
  3. CLARITHROMYCIN [Suspect]
     Indication: HELICOBACTER INFECTION
     Route: 048
     Dates: start: 20120125

REACTIONS (1)
  - Rash pustular [Recovered/Resolved]
